FAERS Safety Report 24566650 (Version 1)
Quarter: 2024Q4

REPORT INFORMATION
  Report Type: Spontaneous
  Country: CH (occurrence: CH)
  Receive Date: 20241030
  Receipt Date: 20241030
  Transmission Date: 20250115
  Serious: Yes (Hospitalization, Other)
  Sender: MYLAN
  Company Number: None

PATIENT
  Age: 31 Year
  Sex: Female

DRUGS (12)
  1. XANAX [Suspect]
     Active Substance: ALPRAZOLAM
     Indication: Product used for unknown indication
     Dosage: 15 MILLIGRAM, TOTAL (15 TABLETS OF ALPRAZOLAM (XANAX) 1 MG)
     Route: 065
     Dates: start: 20240718, end: 20240718
  2. IBUPROFEN [Suspect]
     Active Substance: IBUPROFEN
     Indication: Product used for unknown indication
     Dosage: UNK (DOSE NOT KNOWN)
     Route: 065
     Dates: start: 20240718, end: 20240718
  3. QUETIAPINE [Suspect]
     Active Substance: QUETIAPINE
     Indication: Product used for unknown indication
     Dosage: 30 DOSAGE FORM, TOTAL (3 BLISTER PACKS OF 25 MG TABLETS, BRAND NAME NOT KNOWN)
     Route: 065
     Dates: start: 20240718, end: 20240718
  4. DAFALGAN [Suspect]
     Active Substance: ACETAMINOPHEN
     Indication: Product used for unknown indication
     Dosage: 3000 MILLIGRAM, TOTAL (6 TABLETS OF PARACETAMOL (DAFALGAN) 500 MG)
     Route: 065
     Dates: start: 20240718, end: 20240718
  5. LISDEXAMFETAMINE DIMESYLATE [Suspect]
     Active Substance: LISDEXAMFETAMINE DIMESYLATE
     Indication: Product used for unknown indication
     Dosage: UNK (DOSE NOT KNOWN)
     Route: 065
     Dates: start: 20240718, end: 20240718
  6. FLUOXETINE [Suspect]
     Active Substance: FLUOXETINE HYDROCHLORIDE
     Indication: Product used for unknown indication
     Dosage: 600 MILLIGRAM, TOTAL (BRAND NAME NOT KNOWN, 30 TABLETS OF FLUOXETINE 20MG)
     Route: 065
     Dates: start: 20240718, end: 20240718
  7. QUETIAPINE [Concomitant]
     Active Substance: QUETIAPINE
     Dosage: 25 MILLIGRAM, QD (QUETIAPINE 25 MG 1X/DAY AND PRN (CONTINUED))
     Route: 065
  8. QUETIAPINE [Concomitant]
     Active Substance: QUETIAPINE
     Dosage: 25 MILLIGRAM, PRN (QUETIAPINE 25 MG 1X/DAY AND PRN (CONTINUED))
     Route: 065
  9. XANAX [Concomitant]
     Active Substance: ALPRAZOLAM
     Dosage: 0.5 MILLIGRAM, PRN (ALPRAZOLAM (XANAX) 0.5 MG PRN 1-3X/DAY (CONTINUED))
     Route: 065
  10. LISDEXAMFETAMINE DIMESYLATE [Concomitant]
     Active Substance: LISDEXAMFETAMINE DIMESYLATE
     Dosage: UNK (DOSE NOT KNOWN)
     Route: 065
  11. FLUOXETINE [Concomitant]
     Active Substance: FLUOXETINE HYDROCHLORIDE
     Dosage: 40 MILLIGRAM, QD (BRAND NAME NOT KNOWN, FLUOXETINE 40 MG 1X/DAY (CONTINUED))
     Route: 065
  12. IBUPROFEN [Concomitant]
     Active Substance: IBUPROFEN
     Dosage: UNK, PRN (AS NECESSARY, BRAND NAME NOT KNOWN)
     Route: 065

REACTIONS (6)
  - Electrocardiogram QT prolonged [Recovered/Resolved]
  - Vomiting [Recovered/Resolved]
  - Tachycardia [Recovered/Resolved]
  - Nausea [Recovered/Resolved]
  - Suicide attempt [Recovered/Resolved]
  - Intentional overdose [Recovered/Resolved]

NARRATIVE: CASE EVENT DATE: 20240718
